FAERS Safety Report 6430330-3 (Version None)
Quarter: 2009Q4

REPORT INFORMATION
  Report Type: 
  Country: None (occurrence: None)
  Receive Date: 20091106
  Receipt Date: 20091029
  Transmission Date: 20100525
  Serious: Yes (Hospitalization)
  Sender: FDA-Public Use
  Company Number: AT-GENENTECH-293459

PATIENT
  Sex: Female

DRUGS (7)
  1. TRASTUZUMAB [Suspect]
     Indication: BREAST CANCER
     Dosage: 420 MG, Q3W
     Route: 042
     Dates: start: 20090415, end: 20091001
  2. AVASTIN [Suspect]
     Indication: BREAST CANCER
     Dosage: 15 MG/KG, Q3W
     Route: 042
     Dates: start: 20090415, end: 20091001
  3. DOCETAXEL [Suspect]
     Indication: BREAST CANCER
     Dosage: 168.16 MG, Q3W
     Route: 042
     Dates: start: 20090415
  4. FLUOROURACIL [Suspect]
     Indication: BREAST CANCER
     Dosage: 1034.5 MG, Q3W
     Route: 042
     Dates: start: 20090618
  5. EPIRUBICIN [Suspect]
     Indication: BREAST CANCER
     Dosage: 155.18 UNK, Q3W
     Route: 042
     Dates: start: 20090618
  6. CYCLOPHOSPHAMIDE [Suspect]
     Indication: BREAST CANCER
     Dosage: 1034.5 MG, Q3W
     Route: 042
     Dates: start: 20090618
  7. PANTOPRAZOLE [Concomitant]
     Indication: DRUG USE FOR UNKNOWN INDICATION
     Dosage: UNK
     Dates: start: 20090316

REACTIONS (1)
  - CARDIAC FAILURE [None]
